FAERS Safety Report 6335965-4 (Version None)
Quarter: 2009Q3

REPORT INFORMATION
  Report Type: 
  Country: None (occurrence: None)
  Receive Date: 20090901
  Receipt Date: 20090825
  Transmission Date: 20100115
  Serious: Yes (Hospitalization)
  Sender: FDA-Public Use
  Company Number: BR-RANBAXY-2009R5-26730

PATIENT

DRUGS (2)
  1. ISOTRETINOINA [Suspect]
     Indication: ACNE
     Dosage: 20 MG, UNK
     Route: 048
     Dates: start: 20090601, end: 20090822
  2. ISOTRETINOINA [Suspect]
     Dosage: 20 MG, BID
     Dates: end: 20090822

REACTIONS (9)
  - ANGINA PECTORIS [None]
  - ASTHENIA [None]
  - DIZZINESS [None]
  - DYSPNOEA [None]
  - HYPERLIPIDAEMIA [None]
  - HYPOTENSION [None]
  - HYPOXIA [None]
  - MUCOSAL DRYNESS [None]
  - PULMONARY MASS [None]
